FAERS Safety Report 19875257 (Version 3)
Quarter: 2024Q1

REPORT INFORMATION
  Report Type: Spontaneous
  Country: DK (occurrence: DK)
  Receive Date: 20210923
  Receipt Date: 20240307
  Transmission Date: 20240409
  Serious: Yes (Other)
  Sender: FDA-Public Use
  Company Number: DK-PFIZER INC-202101234252

PATIENT
  Age: 6 Year
  Sex: Male

DRUGS (6)
  1. METHOTREXATE SODIUM [Interacting]
     Active Substance: METHOTREXATE SODIUM
     Indication: Acute lymphocytic leukaemia
     Dosage: 5 G/M2 (HIGH-DOSE), INFUSIONS
     Route: 042
     Dates: start: 1991
  2. METHOTREXATE SODIUM [Interacting]
     Active Substance: METHOTREXATE SODIUM
     Dosage: 1 G/M2, 5 COURSES OF 24-HOUR, INFUSIONS
     Dates: start: 1991
  3. VALPROATE SODIUM [Interacting]
     Active Substance: VALPROATE SODIUM
     Indication: Seizure
     Dosage: 30 MG/KG, IN TWO DAILY DOSES
     Dates: start: 1991
  4. VALPROATE SODIUM [Interacting]
     Active Substance: VALPROATE SODIUM
     Indication: Epilepsy
     Dosage: 45 MG/KG TWO DAILY DOSES
     Dates: start: 1991
  5. LEUCOVORIN [Concomitant]
     Active Substance: LEUCOVORIN\LEUCOVORIN CALCIUM
     Indication: Acute lymphocytic leukaemia
     Dosage: UNK
     Dates: start: 1991
  6. CLONAZEPAM [Concomitant]
     Active Substance: CLONAZEPAM
     Indication: Epilepsy
     Dosage: 1 MG, 3X/DAY
     Dates: start: 1991

REACTIONS (4)
  - Drug interaction [Unknown]
  - Anticonvulsant drug level decreased [Unknown]
  - Generalised tonic-clonic seizure [Unknown]
  - Disease recurrence [Unknown]

NARRATIVE: CASE EVENT DATE: 19910101
